FAERS Safety Report 4302512-8 (Version None)
Quarter: 2004Q1

REPORT INFORMATION
  Report Type: 
  Country: None (occurrence: None)
  Receive Date: 20040219
  Receipt Date: 20030721
  Transmission Date: 20041129
  Serious: Yes (Hospitalization)
  Sender: FDA-Public Use
  Company Number: MK200307-0660-1

PATIENT
  Age: 56 Year
  Sex: Female

DRUGS (1)
  1. OXYCODONE + ACETAMINOPHEN TAB USP, 5/325 MI [Suspect]

REACTIONS (2)
  - DRUG INEFFECTIVE [None]
  - OVERDOSE [None]
